FAERS Safety Report 6535792-9 (Version None)
Quarter: 2010Q1

REPORT INFORMATION
  Report Type: 
  Country: None (occurrence: None)
  Receive Date: 20100113
  Receipt Date: 20091207
  Transmission Date: 20100710
  Serious: Yes (Hospitalization, Other)
  Sender: FDA-Public Use
  Company Number: FR-SANOFI-AVENTIS-2009SA011336

PATIENT
  Age: 62 Year

DRUGS (6)
  1. OXALIPLATIN [Suspect]
     Indication: COLON CANCER
     Route: 041
     Dates: start: 20061218, end: 20061218
  2. OXALIPLATIN [Suspect]
     Route: 041
     Dates: start: 20070531, end: 20070531
  3. FLUOROURACIL [Suspect]
     Indication: COLON CANCER
     Route: 042
     Dates: start: 20061218, end: 20061218
  4. FLUOROURACIL [Suspect]
     Route: 042
     Dates: start: 20070601, end: 20070601
  5. FOLINIC ACID [Suspect]
     Indication: COLON CANCER
     Route: 042
     Dates: start: 20061218, end: 20061218
  6. FOLINIC ACID [Suspect]
     Route: 042
     Dates: start: 20070601, end: 20070601

REACTIONS (2)
  - ANGINA PECTORIS [None]
  - VERTIGO [None]
